FAERS Safety Report 5046254-2 (Version None)
Quarter: 2006Q3

REPORT INFORMATION
  Report Type: 
  Country: None (occurrence: None)
  Receive Date: 20060710
  Receipt Date: 20051114
  Transmission Date: 20061208
  Serious: Yes (Hospitalization, Other)
  Sender: FDA-Public Use
  Company Number: PHHO2005US17849

PATIENT
  Age: 64 Year
  Sex: Male

DRUGS (20)
  1. FLOMAX [Concomitant]
  2. DOXAZOSIN [Concomitant]
  3. TACROLIMUS [Concomitant]
     Indication: RENAL TRANSPLANT
     Route: 048
  4. CYCLOSPORINE [Suspect]
     Indication: RENAL TRANSPLANT
     Dosage: 50 MG, BID
     Route: 048
     Dates: start: 20050302
  5. INSULIN [Concomitant]
  6. MYCOPHENOLATE MOFETIL [Suspect]
     Indication: RENAL TRANSPLANT
     Dosage: 500 MG, BID
     Route: 048
     Dates: end: 20050908
  7. MYCOPHENOLATE MOFETIL [Suspect]
     Dosage: 1000 MG, BID
     Route: 048
     Dates: start: 20050302
  8. PREDNISONE TAB [Suspect]
     Indication: RENAL TRANSPLANT
     Dosage: 25 MG, BID
     Route: 048
     Dates: start: 20050302
  9. PLAVIX [Concomitant]
     Dates: start: 20050306
  10. NORVASC [Concomitant]
     Dates: start: 20050306
  11. XANAX [Concomitant]
     Dates: start: 20050328
  12. CALCITRIOL [Concomitant]
     Dates: start: 20050306
  13. CARDURA [Concomitant]
     Dates: start: 20050306
  14. LUNESTA [Concomitant]
     Dates: start: 20050815
  15. PREVACID [Concomitant]
     Dates: start: 20050517
  16. AMLODIPINE [Concomitant]
     Dates: start: 20050316
  17. CLOTRIMAZOLE [Concomitant]
     Dates: start: 20050316
  18. METOPROLOL TARTRATE [Concomitant]
     Dates: start: 20050316
  19. SEPTRA [Concomitant]
     Dates: start: 20050316
  20. GABAPENTIN [Concomitant]
     Dosage: UNK, UNK
     Dates: start: 20050316

REACTIONS (11)
  - ABSCESS [None]
  - HAEMATOMA [None]
  - HYDRONEPHROSIS [None]
  - INCISION SITE COMPLICATION [None]
  - INFECTION [None]
  - KIDNEY TRANSPLANT REJECTION [None]
  - PERINEPHRIC COLLECTION [None]
  - RENAL ARTERY STENOSIS [None]
  - RENAL DISORDER [None]
  - SEROMA [None]
  - URINARY RETENTION [None]
